FAERS Safety Report 5084181-5 (Version None)
Quarter: 2006Q3

REPORT INFORMATION
  Report Type: 
  Country: None (occurrence: None)
  Receive Date: 20060821
  Receipt Date: 20060419
  Transmission Date: 20061208
  Serious: Yes (Other)
  Sender: FDA-Public Use
  Company Number: US-BRISTOL-MYERS SQUIBB COMPANY-13351655

PATIENT
  Age: 78 Year
  Sex: Female
  Weight: 73 kg

DRUGS (8)
  1. TEQUIN [Suspect]
     Indication: PROPHYLAXIS
     Route: 042
     Dates: start: 20060417, end: 20060401
  2. KLOR-CON [Concomitant]
  3. ZOCOR [Concomitant]
  4. COREG [Concomitant]
  5. DIOVAN [Concomitant]
  6. QUININE SULFATE [Concomitant]
  7. ISOSORBIDE DINITRATE [Concomitant]
  8. NEURONTIN [Concomitant]

REACTIONS (2)
  - STOMACH DISCOMFORT [None]
  - VOMITING [None]
